FAERS Safety Report 13985807 (Version 1)
Quarter: 2017Q3

REPORT INFORMATION
  Report Type: Spontaneous
  Country: US (occurrence: None)
  Receive Date: 20170919
  Receipt Date: 20170919
  Transmission Date: 20171128
  Serious: Yes (Death, Hospitalization)
  Sender: FDA-Public Use
  Company Number: None

PATIENT
  Age: 4 Year
  Sex: Female
  Weight: 17.6 kg

DRUGS (5)
  1. ONCASPAR [Suspect]
     Active Substance: PEGASPARGASE
     Dosage: TOTAL DOSE ADMINISTERED - 1750 UNIT
     Dates: end: 20170731
  2. DEXAMETHASONE. [Suspect]
     Active Substance: DEXAMETHASONE
     Dates: end: 20170810
  3. VINCRISTINE SULFATE. [Suspect]
     Active Substance: VINCRISTINE SULFATE
     Dates: end: 20170804
  4. DAUNORUBICIN [Suspect]
     Active Substance: DAUNORUBICIN
     Dates: end: 20170818
  5. METHOTREXATE. [Suspect]
     Active Substance: METHOTREXATE
     Dates: end: 20170825

REACTIONS (26)
  - Candida test positive [None]
  - Pallor [None]
  - General physical health deterioration [None]
  - Hypoxia [None]
  - Skin lesion [None]
  - Febrile neutropenia [None]
  - Staphylococcus test positive [None]
  - Pneumonia [None]
  - Septic embolus [None]
  - Rectal haemorrhage [None]
  - Gastrointestinal necrosis [None]
  - Colitis [None]
  - Pneumatosis [None]
  - Catheter site haemorrhage [None]
  - Tachypnoea [None]
  - Gastrointestinal sounds abnormal [None]
  - Abdominal distension [None]
  - Acute respiratory failure [None]
  - Pleural effusion [None]
  - Hepatic infection fungal [None]
  - Disseminated intravascular coagulation [None]
  - Splenic infection fungal [None]
  - Gastritis [None]
  - Gastric ulcer haemorrhage [None]
  - Unresponsive to stimuli [None]
  - Urinary tract infection fungal [None]

NARRATIVE: CASE EVENT DATE: 20170810
